FAERS Safety Report 14565611 (Version 2)
Quarter: 2018Q1

REPORT INFORMATION
  Report Type: Report from Study
  Country: IT (occurrence: IT)
  Receive Date: 20180223
  Receipt Date: 20180305
  Transmission Date: 20180509
  Serious: Yes (Hospitalization)
  Sender: FDA-Public Use
  Company Number: IT-ASTRAZENECA-2018SE23315

PATIENT
  Age: 46 Year
  Sex: Female
  Weight: 95 kg

DRUGS (3)
  1. GALUNISERTIB [Suspect]
     Active Substance: GALUNISERTIB
     Indication: PANCREATIC CARCINOMA METASTATIC
     Route: 048
     Dates: start: 20180129
  2. CREON [Concomitant]
     Active Substance: PANCRELIPASE AMYLASE\PANCRELIPASE LIPASE\PANCRELIPASE PROTEASE
     Indication: PANCREATIC FAILURE
     Route: 065
     Dates: start: 201801
  3. DURVALUMAB. [Suspect]
     Active Substance: DURVALUMAB
     Indication: PANCREATIC CARCINOMA METASTATIC
     Route: 042
     Dates: start: 20180129

REACTIONS (1)
  - Jaundice [Recovered/Resolved]

NARRATIVE: CASE EVENT DATE: 20180216
